APPROVED DRUG PRODUCT: NYSTATIN
Active Ingredient: NYSTATIN
Strength: 100,000 UNITS/GM
Dosage Form/Route: POWDER;TOPICAL
Application: A065175 | Product #001
Applicant: PHARMOBEDIENT CONSULTING LLC
Approved: Dec 17, 2004 | RLD: No | RS: No | Type: DISCN